FAERS Safety Report 6203556-1 (Version None)
Quarter: 2009Q2

REPORT INFORMATION
  Report Type: 
  Country: None (occurrence: None)
  Receive Date: 20090527
  Receipt Date: 20090518
  Transmission Date: 20091009
  Serious: Yes (Hospitalization, Other)
  Sender: FDA-Public Use
  Company Number: US-BRISTOL-MYERS SQUIBB COMPANY-14636377

PATIENT
  Age: 39 Year
  Sex: Male

DRUGS (11)
  1. DIDANOSINE [Interacting]
     Indication: HIV INFECTION
     Dosage: INITIAL DIDANOSINE 400 MG PER DAY;DECREASED IN MAR-2004 TO 200 MG PER DAY
     Dates: start: 20040301
  2. TENOFOVIR [Interacting]
     Indication: HIV INFECTION
  3. LOPINAVIR [Suspect]
     Indication: HIV INFECTION
  4. RITONAVIR [Suspect]
     Indication: HIV INFECTION
  5. BICARBONATE [Concomitant]
  6. SULFAMETHOXAZOLE AND TRIMETHOPRIM [Concomitant]
  7. OMEPRAZOLE [Concomitant]
  8. POTASSIUM CHLORIDE [Concomitant]
  9. DRONABINOL [Concomitant]
  10. OXYCODONE HCL AND ACETAMINOPHEN [Concomitant]
  11. CELECOXIB [Concomitant]

REACTIONS (3)
  - DRUG INTERACTION [None]
  - FANCONI SYNDROME [None]
  - NEPHROGENIC DIABETES INSIPIDUS [None]
